FAERS Safety Report 10902633 (Version 2)
Quarter: 2015Q1

REPORT INFORMATION
  Report Type: Spontaneous
  Country: GB (occurrence: GB)
  Receive Date: 20150310
  Receipt Date: 20150311
  Transmission Date: 20150721
  Serious: Yes (Other)
  Sender: FDA-Public Use
  Company Number: PHHY2015GB024812

PATIENT
  Age: 1 Year
  Sex: Female

DRUGS (2)
  1. COCODAMOL [Suspect]
     Active Substance: ACETAMINOPHEN\CODEINE PHOSPHATE
     Dosage: (MATERNAL DOSE: UNKNOWN)
     Route: 064
  2. PARACETAMOL [Suspect]
     Active Substance: ACETAMINOPHEN
     Dosage: (MATERNAL DOSE: UNKNOWN)
     Route: 064

REACTIONS (13)
  - Aphasia [Unknown]
  - Incubator therapy [Unknown]
  - Malaise [Unknown]
  - Dependence [Unknown]
  - Heart rate irregular [Unknown]
  - Tremor [Unknown]
  - Abasia [Unknown]
  - Jaundice [Unknown]
  - Premature baby [Unknown]
  - Hepatic function abnormal [Unknown]
  - Foetal exposure during pregnancy [Unknown]
  - Developmental delay [Unknown]
  - Overdose [Unknown]
